FAERS Safety Report 12949451 (Version 1)
Quarter: 2016Q4

REPORT INFORMATION
  Report Type: Spontaneous
  Country: US (occurrence: US)
  Receive Date: 20161116
  Receipt Date: 20161116
  Transmission Date: 20170207
  Serious: No
  Sender: FDA-Public Use
  Company Number: US-OSMOTICA_PHARMACEUTICAL_US_LLC-POI0573201600054

PATIENT
  Sex: Male

DRUGS (1)
  1. DIVIGEL [Suspect]
     Active Substance: ESTRADIOL
     Dates: end: 2015

REACTIONS (2)
  - Exposure via partner [None]
  - Anxiety [Recovered/Resolved]

NARRATIVE: CASE EVENT DATE: 2015
